FAERS Safety Report 16545193 (Version 4)
Quarter: 2019Q3

REPORT INFORMATION
  Report Type: Spontaneous
  Country: CN (occurrence: CN)
  Receive Date: 20190709
  Receipt Date: 20190723
  Transmission Date: 20191004
  Serious: Yes (Life-Threatening, Other)
  Sender: FDA-Public Use
  Company Number: CN-PFIZER INC-2019288281

PATIENT
  Age: 60 Year
  Sex: Male

DRUGS (3)
  1. PACLITAXEL. [Suspect]
     Active Substance: PACLITAXEL
     Indication: MIXED ADENONEUROENDOCRINE CARCINOMA
     Dosage: 250 MG, CYCLIC(DAY 1(250MG EVERY 6 CYCLE))
  2. CISPLATIN. [Suspect]
     Active Substance: CISPLATIN
     Indication: MIXED ADENONEUROENDOCRINE CARCINOMA
     Dosage: 40 MG, CYCLIC(DAY 1-3(40MG EVERY 6 CYCLE))
  3. APATINIB [Concomitant]
     Active Substance: APATINIB
     Indication: MIXED ADENONEUROENDOCRINE CARCINOMA
     Dosage: UNK

REACTIONS (1)
  - Bone marrow failure [Unknown]
